FAERS Safety Report 19937396 (Version 1)
Quarter: 2021Q4

REPORT INFORMATION
  Report Type: Spontaneous
  Country: US (occurrence: US)
  Receive Date: 20211010
  Receipt Date: 20211010
  Transmission Date: 20220303
  Serious: No
  Sender: FDA-Public Use
  Company Number: US-AMGEN-USASP2021153743

PATIENT
  Age: 46 Year
  Sex: Female
  Weight: 88.8 kg

DRUGS (1)
  1. KANJINTI [Suspect]
     Active Substance: TRASTUZUMAB-ANNS
     Indication: Product used for unknown indication
     Dosage: 550 MILLIGRAM
     Route: 065

REACTIONS (1)
  - Malaise [Unknown]
